FAERS Safety Report 6402225-2 (Version None)
Quarter: 2009Q4

REPORT INFORMATION
  Report Type: 
  Country: None (occurrence: None)
  Receive Date: 20091015
  Receipt Date: 20091005
  Transmission Date: 20100525
  Serious: Yes (Other)
  Sender: FDA-Public Use
  Company Number: US-PFIZER INC-2009280247

PATIENT
  Sex: Male
  Weight: 72.574 kg

DRUGS (6)
  1. LIPITOR [Suspect]
     Indication: BLOOD CHOLESTEROL INCREASED
     Dosage: 20 MG, 1X/DAY
     Dates: start: 20060101
  2. LIPITOR [Suspect]
     Dosage: 80 MG, 1X/DAY
     Dates: end: 20090601
  3. LEVOXYL [Concomitant]
     Dosage: UNK
  4. AMLODIPINE BESILATE [Concomitant]
     Dosage: UNK
  5. HYDROCHLOROTHIAZIDE [Concomitant]
     Dosage: UNK
  6. ASPIRIN [Concomitant]
     Dosage: UNK

REACTIONS (3)
  - BLOOD URINE PRESENT [None]
  - CHROMATURIA [None]
  - MYALGIA [None]
